FAERS Safety Report 16862174 (Version 1)
Quarter: 2019Q3

REPORT INFORMATION
  Report Type: Spontaneous
  Country: US (occurrence: US)
  Receive Date: 20190806
  Receipt Date: 20190806
  Transmission Date: 20191005
  Serious: No
  Sender: FDA-Public Use
  Company Number: None

PATIENT
  Age: 46 Year
  Sex: Female

DRUGS (1)
  1. OPDIVO [Suspect]
     Active Substance: NIVOLUMAB
     Indication: MALIGNANT MELANOMA
     Dosage: ?          OTHER FREQUENCY:Q 28 D;?
     Route: 042
     Dates: start: 201811

REACTIONS (2)
  - Blood magnesium decreased [None]
  - Vitamin D decreased [None]

NARRATIVE: CASE EVENT DATE: 201907
